FAERS Safety Report 9225770 (Version 2)
Quarter: 2013Q2

REPORT INFORMATION
  Report Type: Report from Study
  Country: BR (occurrence: BR)
  Receive Date: 20130411
  Receipt Date: 20130518
  Transmission Date: 20140414
  Serious: Yes (Other)
  Sender: FDA-Public Use
  Company Number: BR-ROCHE-1211396

PATIENT
  Age: 30 Year
  Sex: Female

DRUGS (2)
  1. ALTEPLASE [Suspect]
     Indication: DEEP VEIN THROMBOSIS
     Route: 042
  2. HEPARIN [Suspect]
     Indication: ANTICOAGULANT THERAPY
     Dosage: INITIAL DOSE OF 12,000 IU/DAY, THEN ADJUSTED TO MAINTAIN A PARTIAL THROMBOPLASTIN TIME OF CLOSE TO 6
     Route: 042

REACTIONS (1)
  - Deep vein thrombosis [Unknown]
